FAERS Safety Report 5823823-0 (Version None)
Quarter: 2008Q3

REPORT INFORMATION
  Report Type: 
  Country: None (occurrence: None)
  Receive Date: 20080725
  Receipt Date: 20080715
  Transmission Date: 20090109
  Serious: Yes (Hospitalization, Other)
  Sender: FDA-Public Use
  Company Number: US-PFIZER INC-2008060242

PATIENT
  Sex: Female
  Weight: 59 kg

DRUGS (11)
  1. LYRICA [Suspect]
     Indication: RESTLESS LEGS SYNDROME
     Route: 048
     Dates: start: 20080101, end: 20080715
  2. PREDNISONE TAB [Concomitant]
  3. ABILIFY [Concomitant]
  4. CYMBALTA [Concomitant]
  5. KLONOPIN [Concomitant]
  6. ALL OTHER THERAPEUTIC PRODUCTS [Concomitant]
  7. TYLENOL [Concomitant]
  8. BENADRYL [Concomitant]
  9. MULTI-VITAMINS [Concomitant]
  10. PROMETHAZINE [Concomitant]
  11. REMICADE [Concomitant]

REACTIONS (5)
  - JOINT SWELLING [None]
  - MALNUTRITION [None]
  - OEDEMA PERIPHERAL [None]
  - STRESS FRACTURE [None]
  - WEIGHT INCREASED [None]
